FAERS Safety Report 13021423 (Version 1)
Quarter: 2016Q4

REPORT INFORMATION
  Report Type: Spontaneous
  Country: US (occurrence: US)
  Receive Date: 20161213
  Receipt Date: 20161213
  Transmission Date: 20170207
  Serious: Yes (Hospitalization)
  Sender: FDA-Public Use
  Company Number: US-ACCORD-046524

PATIENT
  Age: 52 Year
  Sex: Male

DRUGS (1)
  1. FLUOROURACIL. [Suspect]
     Active Substance: FLUOROURACIL
     Indication: ANAL CANCER
     Dosage: RECEIVED AN ENTIRE COURSE OF 5-FU THROUGH PUMP IN 24 H INSTEAD OF 96 H

REACTIONS (8)
  - Diarrhoea [Recovering/Resolving]
  - Drug administration error [Unknown]
  - Hyperhidrosis [Recovering/Resolving]
  - Nausea [Recovering/Resolving]
  - Overdose [Unknown]
  - Dyspnoea [Recovering/Resolving]
  - White blood cell count increased [Recovering/Resolving]
  - Chest pain [Recovering/Resolving]
